FAERS Safety Report 6217324-8 (Version None)
Quarter: 2009Q2

REPORT INFORMATION
  Report Type: 
  Country: None (occurrence: None)
  Receive Date: 20090608
  Receipt Date: 20090605
  Transmission Date: 20091009
  Serious: Yes (Other)
  Sender: FDA-Public Use
  Company Number: US-PFIZER INC-2009193761

PATIENT
  Sex: Male
  Weight: 108.39 kg

DRUGS (5)
  1. GEODON [Suspect]
     Indication: TOURETTE'S DISORDER
     Dosage: UNK
     Route: 048
     Dates: end: 20090323
  2. GEODON [Suspect]
     Indication: BIPOLAR DISORDER
  3. ATIVAN [Concomitant]
     Dosage: UNK
     Route: 048
  4. ALL OTHER THERAPEUTIC PRODUCTS [Concomitant]
     Dosage: UNK
     Route: 048
  5. LAMICTAL [Concomitant]
     Dosage: UNK
     Route: 048

REACTIONS (8)
  - ACCIDENTAL OVERDOSE [None]
  - AGITATION [None]
  - ANXIETY [None]
  - DRUG DISPENSING ERROR [None]
  - HALLUCINATION [None]
  - HYPOTENSION [None]
  - SUICIDAL IDEATION [None]
  - TACHYCARDIA [None]
